FAERS Safety Report 6697320-7 (Version None)
Quarter: 2010Q2

REPORT INFORMATION
  Report Type: 
  Country: None (occurrence: None)
  Receive Date: 20100426
  Receipt Date: 20100420
  Transmission Date: 20101027
  Serious: Yes (Death)
  Sender: FDA-Public Use
  Company Number: AU-ASTRAZENECA-2010SE17652

PATIENT
  Age: 39 Year
  Sex: Female
  Weight: 130 kg

DRUGS (6)
  1. SEROQUEL [Suspect]
     Route: 048
     Dates: start: 20091207
  2. ENDEP [Suspect]
     Route: 048
     Dates: start: 20090323
  3. RISPERDAL [Suspect]
     Route: 048
     Dates: start: 20090323
  4. NEXIUM [Concomitant]
     Route: 048
  5. LASIX [Concomitant]
     Dates: start: 20091014
  6. SPIRONOLACTONE [Concomitant]
     Route: 048
     Dates: start: 20091126

REACTIONS (3)
  - CONVULSION [None]
  - DEATH [None]
  - ENCEPHALOPATHY [None]
